FAERS Safety Report 6770608-7 (Version None)
Quarter: 2010Q2

REPORT INFORMATION
  Report Type: 
  Country: None (occurrence: None)
  Receive Date: 20100615
  Receipt Date: 20100610
  Transmission Date: 20101027
  Serious: Yes (Death, Other)
  Sender: FDA-Public Use
  Company Number: JP-ELI_LILLY_AND_COMPANY-JP201005007854

PATIENT
  Sex: Female
  Weight: 52 kg

DRUGS (9)
  1. ALIMTA [Suspect]
     Indication: LUNG ADENOCARCINOMA STAGE IV
     Dosage: 700 MG, UNK
     Route: 042
     Dates: start: 20091102, end: 20091102
  2. ALIMTA [Suspect]
     Dosage: 700 MG, UNK
     Route: 042
     Dates: start: 20091125, end: 20091125
  3. BRIPLATIN [Concomitant]
     Indication: LUNG ADENOCARCINOMA STAGE IV
     Dosage: 100 MG, UNK
     Route: 042
     Dates: start: 20091102, end: 20091102
  4. PARAPLATIN [Concomitant]
     Indication: LUNG ADENOCARCINOMA STAGE IV
     Dosage: 600 MG
     Route: 042
     Dates: start: 20091125, end: 20091125
  5. TOWAMIN [Concomitant]
     Dosage: 1 D/F, DAILY (1/D)
     Route: 048
  6. LIPITOR [Concomitant]
     Dosage: 1 D/F, DAILY (1/D)
     Route: 048
  7. OLMETEC [Concomitant]
     Dosage: 1 D/F, DAILY (1/D)
     Route: 048
  8. SEPAMIT-R [Concomitant]
     Dosage: 1 D/F, DAILY (1/D)
     Route: 048
  9. DEPAS [Concomitant]
     Dosage: 3 D/F, 2/D
     Route: 048

REACTIONS (6)
  - FEBRILE NEUTROPENIA [None]
  - MALIGNANT NEOPLASM PROGRESSION [None]
  - NAUSEA [None]
  - PLATELET COUNT DECREASED [None]
  - PNEUMONIA [None]
  - WHITE BLOOD CELL COUNT DECREASED [None]
